FAERS Safety Report 19440736 (Version 1)
Quarter: 2021Q2

REPORT INFORMATION
  Report Type: Spontaneous
  Country: BR (occurrence: BR)
  Receive Date: 20210621
  Receipt Date: 20210621
  Transmission Date: 20210717
  Serious: Yes (Other)
  Sender: FDA-Public Use
  Company Number: BR-NOVOPROD-821171

PATIENT
  Age: 66 Year
  Sex: Female
  Weight: 84 kg

DRUGS (20)
  1. MAREVAN [Concomitant]
     Active Substance: WARFARIN SODIUM
     Indication: PRODUCT USED FOR UNKNOWN INDICATION
     Dosage: 5MG MID
     Route: 065
  2. INSULATARD HM [Suspect]
     Active Substance: INSULIN HUMAN
     Indication: PRODUCT USED FOR UNKNOWN INDICATION
     Dosage: 30 IU, QD (20UI + 0 + 10UI)
     Route: 065
  3. SIMVASTATIN. [Concomitant]
     Active Substance: SIMVASTATIN
     Indication: PRODUCT USED FOR UNKNOWN INDICATION
     Dosage: 40 MG
     Route: 065
  4. ISOSORBIDE MONONITRATE. [Concomitant]
     Active Substance: ISOSORBIDE MONONITRATE
     Indication: PRODUCT USED FOR UNKNOWN INDICATION
     Dosage: 20 MG, BID
     Route: 065
  5. TAPAZOL [KETOCONAZOLE] [Concomitant]
     Active Substance: KETOCONAZOLE
     Indication: PRODUCT USED FOR UNKNOWN INDICATION
     Dosage: 5 MG, QD
     Route: 065
  6. INSULATARD HM [Suspect]
     Active Substance: INSULIN HUMAN
     Dosage: 38 IU, QD (30UI+ 0+ 08UI )
     Route: 065
  7. FENOTEROL [Concomitant]
     Active Substance: FENOTEROL
     Indication: PRODUCT USED FOR UNKNOWN INDICATION
     Dosage: 100MCG 02 PUFFS OF 4/4H
     Route: 065
  8. CARVEDILOL. [Concomitant]
     Active Substance: CARVEDILOL
     Dosage: 3.125 03 CP
     Route: 065
  9. BUDESONIDE AND FORMOTEROL [Concomitant]
     Active Substance: BUDESONIDE\FORMOTEROL
     Indication: PRODUCT USED FOR UNKNOWN INDICATION
     Dosage: 400 MCG
     Route: 065
  10. GLUCOPHAGE XR [Concomitant]
     Active Substance: METFORMIN HYDROCHLORIDE
     Indication: PRODUCT USED FOR UNKNOWN INDICATION
     Dosage: 500 MG, BID
     Route: 065
  11. JARDIANCE [Concomitant]
     Active Substance: EMPAGLIFLOZIN
     Indication: PRODUCT USED FOR UNKNOWN INDICATION
     Dosage: 25 MG
     Route: 065
  12. TAPAZOL [KETOCONAZOLE] [Concomitant]
     Active Substance: KETOCONAZOLE
     Dosage: 5 MG, QD
     Route: 065
  13. TAPAZOL [KETOCONAZOLE] [Concomitant]
     Active Substance: KETOCONAZOLE
     Dosage: 10 MG
     Route: 065
  14. INSULATARD HM [Suspect]
     Active Substance: INSULIN HUMAN
     Dosage: 36 IU, QD (30UI+ 0+ 06UI )
     Route: 065
  15. FUROSEMIDE. [Concomitant]
     Active Substance: FUROSEMIDE
     Indication: PRODUCT USED FOR UNKNOWN INDICATION
     Dosage: 40 MG, BID
     Route: 065
  16. HYDRALAZINE [Concomitant]
     Active Substance: HYDRALAZINE HYDROCHLORIDE
     Indication: PRODUCT USED FOR UNKNOWN INDICATION
     Dosage: 25 MG MID
     Route: 065
  17. OMEPRAZOLE. [Concomitant]
     Active Substance: OMEPRAZOLE
     Indication: PRODUCT USED FOR UNKNOWN INDICATION
     Dosage: 20 MG
  18. TAPAZOL [KETOCONAZOLE] [Concomitant]
     Active Substance: KETOCONAZOLE
     Dosage: 20 MG, QD
     Route: 065
  19. INSULATARD HM [Suspect]
     Active Substance: INSULIN HUMAN
     Dosage: 20 IU, QD (IN MORNING)
     Route: 065
  20. LOSARTAN. [Concomitant]
     Active Substance: LOSARTAN
     Indication: PRODUCT USED FOR UNKNOWN INDICATION
     Dosage: 50 MG MID
     Route: 065

REACTIONS (5)
  - Hyperglycaemia [Unknown]
  - Right ventricular dilatation [Unknown]
  - Hypoglycaemia [Unknown]
  - Left atrial enlargement [Unknown]
  - Hyperthyroidism [Unknown]
